FAERS Safety Report 10037075 (Version 1)
Quarter: 2014Q1

REPORT INFORMATION
  Report Type: Spontaneous
  Country: US (occurrence: None)
  Receive Date: 20140325
  Receipt Date: 20140325
  Transmission Date: 20141002
  Serious: Yes (Death, Life-Threatening, Hospitalization, Disabling)
  Sender: FDA-Public Use
  Company Number: None

PATIENT
  Age: 74 Year
  Sex: Female
  Weight: 79.83 kg

DRUGS (18)
  1. JANUVIA [Suspect]
     Indication: TYPE 2 DIABETES MELLITUS
     Route: 048
     Dates: start: 20130819, end: 20131125
  2. CRESTOR [Concomitant]
  3. CLOPIDOGREL [Concomitant]
  4. BUMETANIDE [Concomitant]
  5. NEXIUM [Concomitant]
  6. GABAPENTIN [Concomitant]
  7. VALSAITAN HCT [Concomitant]
  8. ISOSORBIDE MONONITRITE [Concomitant]
  9. INVOKANA [Concomitant]
  10. JANUVIA [Concomitant]
  11. LANTUS [Concomitant]
  12. ACTONEL [Concomitant]
  13. LEVOTHYROXINE [Concomitant]
  14. RANEXA [Concomitant]
  15. NASONEX [Concomitant]
  16. ZETIA [Concomitant]
  17. SYMBICORT [Concomitant]
  18. ASPIRIN [Concomitant]

REACTIONS (1)
  - Pancreatic carcinoma metastatic [None]
